FAERS Safety Report 10244825 (Version 1)
Quarter: 2014Q2

REPORT INFORMATION
  Report Type: Spontaneous
  Country: US (occurrence: US)
  Receive Date: 20140618
  Receipt Date: 20140618
  Transmission Date: 20141212
  Serious: No
  Sender: FDA-Public Use
  Company Number: US-TEVA-489371USA

PATIENT
  Age: 45 Year
  Sex: Female
  Weight: 62.65 kg

DRUGS (2)
  1. PLAN B ONE-STEP [Suspect]
     Indication: POST COITAL CONTRACEPTION
     Dosage: 1.5 MILLIGRAM DAILY;
     Route: 048
     Dates: start: 20140610, end: 20140610
  2. CRANACTIN [Concomitant]
     Indication: PROPHYLAXIS
     Dates: start: 20140609

REACTIONS (3)
  - Feeling abnormal [Recovered/Resolved]
  - Discomfort [Unknown]
  - Nausea [Not Recovered/Not Resolved]
